FAERS Safety Report 13971908 (Version 1)
Quarter: 2017Q3

REPORT INFORMATION
  Report Type: Spontaneous
  Country: US (occurrence: US)
  Receive Date: 20170914
  Receipt Date: 20170914
  Transmission Date: 20171128
  Serious: Yes (Life-Threatening)
  Sender: FDA-Public Use
  Company Number: None

PATIENT
  Age: 88 Year
  Weight: 67.5 kg

DRUGS (27)
  1. ALLEGRA [Concomitant]
     Active Substance: FEXOFENADINE HYDROCHLORIDE
  2. ALLEGRA [Concomitant]
     Active Substance: FEXOFENADINE HYDROCHLORIDE
  3. CENTRUM SILVER [Concomitant]
     Active Substance: MINERALS\VITAMINS
  4. WARFARIN [Concomitant]
     Active Substance: WARFARIN
  5. POTASSIUM CHLORIDE. [Concomitant]
     Active Substance: POTASSIUM CHLORIDE
  6. PENICILLILN [Concomitant]
  7. SULFA ASPIRIN [Concomitant]
  8. CARVEDILOL. [Concomitant]
     Active Substance: CARVEDILOL
  9. ATORVASTATIN [Concomitant]
     Active Substance: ATORVASTATIN
  10. SUCRALFATE. [Suspect]
     Active Substance: SUCRALFATE
     Indication: GASTRITIS
     Route: 048
     Dates: start: 20170818, end: 20170907
  11. HYDROCHLOROTHIAZIDE. [Concomitant]
     Active Substance: HYDROCHLOROTHIAZIDE
  12. LISINOPRIL. [Concomitant]
     Active Substance: LISINOPRIL
  13. NASACORT NASAL SPRAY [Concomitant]
  14. CARVEDILOL. [Concomitant]
     Active Substance: CARVEDILOL
  15. ATORVASTATIN [Concomitant]
     Active Substance: ATORVASTATIN
  16. FUROSEMIDE. [Concomitant]
     Active Substance: FUROSEMIDE
  17. LISINOPRIL. [Concomitant]
     Active Substance: LISINOPRIL
  18. PROBIOTIC [Concomitant]
     Active Substance: PROBIOTICS NOS
  19. ASPIRIN. [Concomitant]
     Active Substance: ASPIRIN
  20. COUMADIN [Concomitant]
     Active Substance: WARFARIN SODIUM
  21. EYE CAPS [Concomitant]
  22. PROBIOTIC [Concomitant]
     Active Substance: PROBIOTICS NOS
  23. POTASSIUM [Concomitant]
     Active Substance: POTASSIUM
  24. FUROSEMIDE. [Concomitant]
     Active Substance: FUROSEMIDE
  25. CARAFATE [Concomitant]
     Active Substance: SUCRALFATE
  26. HYDROCHLOROTHIAZIDE. [Concomitant]
     Active Substance: HYDROCHLOROTHIAZIDE
  27. POTASSIUM CHLORIDE. [Concomitant]
     Active Substance: POTASSIUM CHLORIDE

REACTIONS (4)
  - Foreign body in respiratory tract [None]
  - Product size issue [None]
  - Obstructive airways disorder [None]
  - Cough [None]

NARRATIVE: CASE EVENT DATE: 20170908
